FAERS Safety Report 7272027-6 (Version None)
Quarter: 2011Q1

REPORT INFORMATION
  Report Type: 
  Country: None (occurrence: None)
  Receive Date: 20110131
  Receipt Date: 20110131
  Transmission Date: 20110831
  Serious: No
  Sender: FDA-Public Use
  Company Number: None

PATIENT
  Sex: Female

DRUGS (1)
  1. CEFAZOLIN [Suspect]
     Indication: CELLULITIS
     Dosage: 2 GM Q6H IV
     Route: 042
     Dates: start: 20110124, end: 20110126

REACTIONS (2)
  - INFUSION RELATED REACTION [None]
  - RASH [None]
